FAERS Safety Report 22397098 (Version 2)
Quarter: 2023Q2

REPORT INFORMATION
  Report Type: Spontaneous
  Country: US (occurrence: US)
  Receive Date: 20230602
  Receipt Date: 20230607
  Transmission Date: 20230722
  Serious: Yes (Other)
  Sender: FDA-Public Use
  Company Number: US-BRISTOL-MYERS SQUIBB COMPANY-2023-077017

PATIENT
  Age: 77 Year
  Sex: Male

DRUGS (1)
  1. REVLIMID [Suspect]
     Active Substance: LENALIDOMIDE
     Indication: Plasma cell myeloma
     Dosage: FREQUENCY: OTHER
     Route: 048
     Dates: start: 202005

REACTIONS (6)
  - Bradycardia [Unknown]
  - Cataract [Unknown]
  - Dizziness [Unknown]
  - Constipation [Recovered/Resolved]
  - Gastrointestinal disorder [Recovered/Resolved]
  - Gastrooesophageal reflux disease [Recovered/Resolved]

NARRATIVE: CASE EVENT DATE: 20200501
